FAERS Safety Report 9168505 (Version 1)
Quarter: 2013Q1

REPORT INFORMATION
  Report Type: Spontaneous
  Country: CA (occurrence: CA)
  Receive Date: 20130318
  Receipt Date: 20130318
  Transmission Date: 20140127
  Serious: Yes (Death, Hospitalization)
  Sender: FDA-Public Use
  Company Number: CA-SANOFI-AVENTIS-200715239GDDC

PATIENT
  Age: 64 Year
  Sex: Female

DRUGS (3)
  1. TAXOTERE [Suspect]
     Indication: BREAST CANCER METASTATIC
     Dosage: DOSE AS USED: UNK
     Route: 065
     Dates: start: 200704
  2. TAXOTERE [Suspect]
     Indication: BREAST CANCER METASTATIC
     Dosage: DOSE AS USED: UNK
     Route: 065
  3. PAMIDRONATE DISODIUM [Concomitant]
     Indication: BREAST CANCER METASTATIC
     Dates: start: 200704

REACTIONS (5)
  - Pneumonitis [Fatal]
  - Oxygen saturation decreased [Fatal]
  - Pyrexia [Fatal]
  - Dyspnoea [Fatal]
  - Lung infiltration [Fatal]
